FAERS Safety Report 5068180-5 (Version None)
Quarter: 2006Q3

REPORT INFORMATION
  Report Type: 
  Country: None (occurrence: None)
  Receive Date: 20060731
  Receipt Date: 20060719
  Transmission Date: 20061208
  Serious: Yes (Other)
  Sender: FDA-Public Use
  Company Number: CHPA2006US07077

PATIENT
  Age: 53 Year
  Sex: Female
  Weight: 81.6 kg

DRUGS (11)
  1. NICOTINE [Suspect]
     Indication: SMOKING CESSATION THERAPY
     Dosage: 21 MG, ONCE/SINGLE, TRANSDERMAL
     Route: 062
     Dates: start: 20060719, end: 20060719
  2. TRILAFON (PERPHENAZINE ENANTATE) [Concomitant]
  3. XANAX XR [Concomitant]
  4. XANAX [Concomitant]
  5. PROZAC [Concomitant]
  6. LAMICTAL [Concomitant]
  7. MEVACOR [Concomitant]
  8. ASPIRIN TAB [Concomitant]
  9. KLONADINE [Concomitant]
  10. DIMIDEX [Concomitant]
  11. NORVASC [Concomitant]

REACTIONS (10)
  - DIZZINESS [None]
  - HEADACHE [None]
  - HYPERHIDROSIS [None]
  - MALAISE [None]
  - NAUSEA [None]
  - NECK PAIN [None]
  - NERVOUSNESS [None]
  - RETCHING [None]
  - SYNCOPE [None]
  - VOMITING [None]
